FAERS Safety Report 4417385-2 (Version None)
Quarter: 2004Q3

REPORT INFORMATION
  Report Type: 
  Country: None (occurrence: None)
  Receive Date: 20040802
  Receipt Date: 20040715
  Transmission Date: 20050211
  Serious: Yes (Other)
  Sender: FDA-Public Use
  Company Number: 8003889

PATIENT
  Age: 14 Year
  Sex: Female
  Weight: 51.36 kg

DRUGS (6)
  1. KEPPRA [Suspect]
     Indication: CONVULSION
     Dosage: 125 MG PO
     Route: 048
     Dates: start: 20030804, end: 20030816
  2. KEPPRA [Suspect]
     Indication: CONVULSION
     Dosage: 125 MG 2/D PO
     Route: 048
     Dates: start: 20030817, end: 20030101
  3. LAMICTAL [Concomitant]
  4. MYSOLINE [Concomitant]
  5. PAXIL [Concomitant]
  6. TOFRANIL [Concomitant]

REACTIONS (10)
  - ASTHENIA [None]
  - ELECTROENCEPHALOGRAM ABNORMAL [None]
  - JOINT DISLOCATION [None]
  - PARALYSIS FLACCID [None]
  - PETIT MAL EPILEPSY [None]
  - PHARMACEUTICAL PRODUCT COMPLAINT [None]
  - REFUSAL OF TREATMENT BY RELATIVE [None]
  - SENSORY DISTURBANCE [None]
  - SYNCOPE [None]
  - VISUAL ACUITY REDUCED [None]
